FAERS Safety Report 8801455 (Version 2)
Quarter: 2015Q2

REPORT INFORMATION
  Report Type: Report from Study
  Country: US (occurrence: US)
  Receive Date: 20120921
  Receipt Date: 20150402
  Transmission Date: 20150821
  Serious: Yes (Death, Hospitalization)
  Sender: FDA-Public Use
  Company Number: US-ROCHE-1126148

PATIENT
  Sex: Female

DRUGS (29)
  1. ANZEMET [Concomitant]
     Active Substance: DOLASETRON MESYLATE
     Route: 042
  2. KYTRIL [Concomitant]
     Active Substance: GRANISETRON HYDROCHLORIDE
     Route: 042
  3. LEUCOVORIN [Concomitant]
     Active Substance: LEUCOVORIN
     Route: 065
  4. TAMOXIFEN [Concomitant]
     Active Substance: TAMOXIFEN
  5. NEXIUM [Concomitant]
     Active Substance: ESOMEPRAZOLE MAGNESIUM
     Route: 065
  6. POTASSIUM CHLORIDE. [Concomitant]
     Active Substance: POTASSIUM CHLORIDE
     Route: 042
  7. ATIVAN [Concomitant]
     Active Substance: LORAZEPAM
     Route: 065
  8. DECADRON [Concomitant]
     Active Substance: DEXAMETHASONE
     Route: 065
  9. TAGAMET [Concomitant]
     Active Substance: CIMETIDINE
  10. ALOXI [Concomitant]
     Active Substance: PALONOSETRON HYDROCHLORIDE
     Route: 065
  11. VICODIN [Concomitant]
     Active Substance: ACETAMINOPHEN\HYDROCODONE BITARTRATE
     Dosage: 3 TABLETS
     Route: 065
  12. AVASTIN [Suspect]
     Active Substance: BEVACIZUMAB
     Indication: RECTOSIGMOID CANCER
     Route: 042
     Dates: start: 2004, end: 200406
  13. HYDROCHLOROTHIAZIDE. [Concomitant]
     Active Substance: HYDROCHLOROTHIAZIDE
     Route: 065
  14. NEURONTIN [Concomitant]
     Active Substance: GABAPENTIN
     Route: 065
  15. RESTORIL (UNITED STATES) [Concomitant]
     Route: 065
  16. ENULOSE [Concomitant]
     Active Substance: LACTULOSE
     Dosage: PM
     Route: 065
  17. ZOFRAN [Concomitant]
     Active Substance: ONDANSETRON HYDROCHLORIDE
     Route: 042
  18. LEUCOVORIN [Concomitant]
     Active Substance: LEUCOVORIN
     Route: 065
  19. DECADRON [Concomitant]
     Active Substance: DEXAMETHASONE
     Route: 065
  20. COLACE [Concomitant]
     Active Substance: DOCUSATE SODIUM
     Dosage: PM
     Route: 065
  21. OXALIPLATIN. [Concomitant]
     Active Substance: OXALIPLATIN
     Route: 065
  22. AVASTIN [Suspect]
     Active Substance: BEVACIZUMAB
     Indication: ANAL CANCER
     Route: 042
     Dates: start: 200407
  23. FLUOROURACIL. [Concomitant]
     Active Substance: FLUOROURACIL
     Dosage: 5 ROUNDS
     Route: 065
  24. FLUOROURACIL. [Concomitant]
     Active Substance: FLUOROURACIL
     Route: 065
  25. NORVASC [Concomitant]
     Active Substance: AMLODIPINE BESYLATE
     Route: 065
  26. NORVASC [Concomitant]
     Active Substance: AMLODIPINE BESYLATE
     Route: 065
  27. CELEBREX [Concomitant]
     Active Substance: CELECOXIB
     Route: 065
  28. VALIUM [Concomitant]
     Active Substance: DIAZEPAM
     Route: 065
  29. PROCRIT [Concomitant]
     Active Substance: ERYTHROPOIETIN
     Route: 065

REACTIONS (22)
  - Abdominal pain [Unknown]
  - Asthenia [Unknown]
  - Dyspnoea [Unknown]
  - Fatigue [Unknown]
  - Arthralgia [Unknown]
  - Intestinal obstruction [Unknown]
  - Constipation [Unknown]
  - Diarrhoea [Unknown]
  - Hypertension [Unknown]
  - Vomiting [Unknown]
  - Anxiety [Unknown]
  - Gait disturbance [Unknown]
  - Insomnia [Unknown]
  - Proteinuria [Unknown]
  - Neck pain [Unknown]
  - Nausea [Unknown]
  - Dehydration [Unknown]
  - Epistaxis [Unknown]
  - Dyspepsia [Unknown]
  - Weight decreased [Unknown]
  - Death [Fatal]
  - Disease progression [Unknown]
